FAERS Safety Report 8575457-5 (Version None)
Quarter: 2012Q3

REPORT INFORMATION
  Report Type: 
  Country: None (occurrence: None)
  Receive Date: 20120807
  Receipt Date: 20120801
  Transmission Date: 20120928
  Serious: Yes (Hospitalization, Other)
  Sender: FDA-Public Use
  Company Number: PHHY2012BR045358

PATIENT
  Sex: Male

DRUGS (6)
  1. LASIX [Concomitant]
     Indication: HYDROTHERAPY
     Dosage: 2 DF, DAILY
     Route: 048
  2. DIOVAN [Suspect]
     Dosage: 1 DF, DAILY (320 MG)
     Route: 048
  3. NIFEDIPINE [Concomitant]
     Indication: CARDIAC DISORDER
     Dosage: 2 DF,DAILY
     Route: 048
  4. DIOVAN [Suspect]
     Indication: CARDIAC DISORDER
     Dosage: 1 DF, DAILY (160 MG)
     Route: 048
  5. ALDACTONE [Concomitant]
     Indication: CARDIAC DISORDER
     Dosage: 1 DF, DAILY
     Route: 048
  6. WARFARIN SODIUM [Concomitant]
     Indication: ANTICOAGULANT THERAPY
     Dosage: 3 DF, PER WEEK
     Route: 048

REACTIONS (3)
  - LIMB INJURY [None]
  - THROMBOSIS [None]
  - NO THERAPEUTIC RESPONSE [None]
